FAERS Safety Report 13445956 (Version 1)
Quarter: 2017Q2

REPORT INFORMATION
  Report Type: Spontaneous
  Country: US (occurrence: US)
  Receive Date: 20170417
  Receipt Date: 20170417
  Transmission Date: 20170830
  Serious: No
  Sender: FDA-Public Use
  Company Number: US-BION-006007

PATIENT
  Sex: Female

DRUGS (2)
  1. TYLENOL COLD [Concomitant]
  2. ALEVE [Suspect]
     Active Substance: NAPROXEN SODIUM
     Indication: PAIN
     Dosage: ONCE A DAY EVERY DAY?RECEIVED FOR A COUPLE OF MONTH

REACTIONS (2)
  - Incorrect drug administration duration [Not Recovered/Not Resolved]
  - Incorrect dose administered [Not Recovered/Not Resolved]
